FAERS Safety Report 20501783 (Version 1)
Quarter: 2022Q1

REPORT INFORMATION
  Report Type: Other
  Country: AR (occurrence: AR)
  Receive Date: 20220222
  Receipt Date: 20220222
  Transmission Date: 20220423
  Serious: Yes (Other)
  Sender: FDA-Public Use
  Company Number: AR-002147023-NVSC2021AR059691

PATIENT
  Sex: Female

DRUGS (2)
  1. XOLAIR [Suspect]
     Active Substance: OMALIZUMAB
     Indication: Urticaria chronic
     Dosage: 300 MG, 4 WEEKS
     Route: 058
     Dates: start: 20181030, end: 202101
  2. XOLAIR [Suspect]
     Active Substance: OMALIZUMAB
     Dosage: 300 MG, 4 WEEKS
     Route: 058
     Dates: start: 202108

REACTIONS (8)
  - Angioedema [Unknown]
  - Feeling abnormal [Unknown]
  - Gait disturbance [Unknown]
  - Eye swelling [Unknown]
  - Pain [Unknown]
  - Pruritus [Unknown]
  - Urticaria [Unknown]
  - Off label use [Unknown]

NARRATIVE: CASE EVENT DATE: 20210104
